FAERS Safety Report 10630817 (Version 1)
Quarter: 2014Q4

REPORT INFORMATION
  Report Type: Spontaneous
  Country: US (occurrence: US)
  Receive Date: 20141205
  Receipt Date: 20141205
  Transmission Date: 20150529
  Serious: Yes (Other)
  Sender: FDA-Public Use
  Company Number: US-BRISTOL-MYERS SQUIBB COMPANY-20652996

PATIENT
  Age: 88 Year
  Sex: Female

DRUGS (13)
  1. LEXAPRO [Concomitant]
     Active Substance: ESCITALOPRAM OXALATE
  2. MESTINON [Concomitant]
     Active Substance: PYRIDOSTIGMINE BROMIDE
  3. INSULIN [Concomitant]
     Active Substance: INSULIN NOS
  4. LOPRESSOR [Concomitant]
     Active Substance: METOPROLOL TARTRATE
  5. METHYLPREDNISOLONE. [Concomitant]
     Active Substance: METHYLPREDNISOLONE
  6. PROAMATINE [Concomitant]
     Active Substance: MIDODRINE HYDROCHLORIDE
  7. YERVOY [Suspect]
     Active Substance: IPILIMUMAB
     Indication: MALIGNANT MELANOMA
  8. ASPIRIN. [Concomitant]
     Active Substance: ASPIRIN
  9. SYNTHROID [Concomitant]
     Active Substance: LEVOTHYROXINE SODIUM
  10. LIPITOR [Concomitant]
     Active Substance: ATORVASTATIN CALCIUM
  11. GABAPENTIN. [Concomitant]
     Active Substance: GABAPENTIN
  12. PROTONIX [Concomitant]
     Active Substance: PANTOPRAZOLE SODIUM
  13. ZYLOPRIM [Concomitant]
     Active Substance: ALLOPURINOL

REACTIONS (2)
  - Orthostatic hypertension [Unknown]
  - Autonomic neuropathy [Unknown]
